FAERS Safety Report 11634507 (Version 4)
Quarter: 2015Q4

REPORT INFORMATION
  Report Type: Spontaneous
  Country: US (occurrence: None)
  Receive Date: 20151015
  Receipt Date: 20151030
  Transmission Date: 20160304
  Serious: No
  Sender: FDA-Public Use
  Company Number: US-MDT-ADR-2015-01967

PATIENT
  Age: 62 Year
  Sex: Male

DRUGS (2)
  1. COMPOUNDED CLONIDINE INTRATHECAL [Suspect]
     Active Substance: CLONIDINE
  2. COMPOUNDED BACLOFEN INTRATHECAL [Suspect]
     Active Substance: BACLOFEN
     Indication: PAIN

REACTIONS (3)
  - Blood pressure difference of extremities [None]
  - Blood pressure increased [None]
  - Pain [None]
